FAERS Safety Report 7533679-6 (Version None)
Quarter: 2011Q2

REPORT INFORMATION
  Report Type: 
  Country: None (occurrence: None)
  Receive Date: 20110608
  Receipt Date: 20060320
  Transmission Date: 20111010
  Serious: Yes (Death, Other)
  Sender: FDA-Public Use
  Company Number: PHFR2006GB00442

PATIENT
  Sex: Male

DRUGS (11)
  1. PIRENZEPINE [Concomitant]
     Dosage: 50 MG, TID
     Route: 048
  2. MIACALCIN [Concomitant]
     Dosage: AS REQUIRED
     Route: 065
  3. LORAZEPAM [Concomitant]
     Dosage: AS REQUIRED
     Route: 065
  4. SENNA-MINT WAF [Concomitant]
     Dosage: AS REQUIRED
     Route: 065
  5. PROCYCLIDINE HYDROCHLORIDE 2MG TAB [Concomitant]
     Dosage: AS REQUIRED
     Route: 065
  6. ACETAMINOPHEN [Concomitant]
     Dosage: AS REQUIRED
     Route: 065
  7. CLOZAPINE [Suspect]
     Indication: SCHIZOPHRENIA
     Dosage: 900 MG, UNK
     Route: 048
     Dates: start: 19960919
  8. CLOPIXOL                           /00876701/ [Concomitant]
     Dosage: AS REQUIRED
     Route: 065
  9. OMEPRAZOLE [Concomitant]
     Dosage: 20 MG, BID
     Route: 048
  10. VALPROATE SODIUM [Concomitant]
     Dosage: 400 MG, BID
     Route: 048
  11. MAGNESIUM GLYCEROPHOSPHATE [Concomitant]
     Route: 048

REACTIONS (12)
  - LEFT VENTRICULAR HYPERTROPHY [None]
  - VOMITING [None]
  - RENAL TUBULAR NECROSIS [None]
  - PULMONARY CONGESTION [None]
  - PULMONARY OEDEMA [None]
  - INTENTIONAL SELF-INJURY [None]
  - ASPIRATION [None]
  - AREFLEXIA [None]
  - HEPATIC CONGESTION [None]
  - CIRCULATORY COLLAPSE [None]
  - DIARRHOEA [None]
  - IMPAIRED GASTRIC EMPTYING [None]
